FAERS Safety Report 25275938 (Version 1)
Quarter: 2025Q2

REPORT INFORMATION
  Report Type: Spontaneous
  Country: TR (occurrence: TR)
  Receive Date: 20250507
  Receipt Date: 20250507
  Transmission Date: 20250716
  Serious: Yes (Other)
  Sender: INDOCO REMEDIES LIMITED
  Company Number: TR-MLMSERVICE-20250423-PI489032-00043-1

PATIENT
  Age: 57 Year
  Sex: Female

DRUGS (1)
  1. ALLOPURINOL [Suspect]
     Active Substance: ALLOPURINOL
     Indication: Product used for unknown indication
     Route: 065

REACTIONS (3)
  - Blood disorder [Unknown]
  - Renal disorder [Unknown]
  - Drug reaction with eosinophilia and systemic symptoms [Recovered/Resolved]
